FAERS Safety Report 16094316 (Version 1)
Quarter: 2019Q2

REPORT INFORMATION
  Report Type: Spontaneous
  Country: US (occurrence: US)
  Receive Date: 20190319
  Receipt Date: 20190319
  Transmission Date: 20190711
  Serious: Yes (Hospitalization)
  Sender: FDA-Public Use
  Company Number: None

PATIENT
  Age: 60 Year
  Sex: Female

DRUGS (9)
  1. LISINOPRIL. [Concomitant]
     Active Substance: LISINOPRIL
  2. HUMIRA [Suspect]
     Active Substance: ADALIMUMAB
     Indication: RHEUMATOID ARTHRITIS
     Dosage: ?          OTHER FREQUENCY:QOW;?
     Route: 058
     Dates: start: 20151125
  3. ESTRADIOL. [Concomitant]
     Active Substance: ESTRADIOL
  4. CALCIUM [Concomitant]
     Active Substance: CALCIUM
  5. METANX [Concomitant]
     Active Substance: LEVOMEFOLATE CALCIUM\METHYLCOBALAMIN\PYRIDOXAL PHOSPHATE ANHYDROUS
  6. FOSAMAX [Concomitant]
     Active Substance: ALENDRONATE SODIUM
  7. SIMVASTATIN. [Concomitant]
     Active Substance: SIMVASTATIN
  8. JUICE/FIBRE [Concomitant]
  9. PREDNISONE. [Concomitant]
     Active Substance: PREDNISONE

REACTIONS (2)
  - Spinal operation [None]
  - Therapy cessation [None]

NARRATIVE: CASE EVENT DATE: 20190227
